FAERS Safety Report 14721533 (Version 1)
Quarter: 2018Q2

REPORT INFORMATION
  Report Type: Spontaneous
  Country: SA (occurrence: SA)
  Receive Date: 20180405
  Receipt Date: 20180405
  Transmission Date: 20180711
  Serious: Yes (Hospitalization)
  Sender: FDA-Public Use
  Company Number: SA-FRESENIUS KABI-FK201804076

PATIENT
  Age: 4 Year
  Sex: Male

DRUGS (5)
  1. PIPERACILLIN/TAZOBACTAM (MANUFACTURER UNKNOWN) [Suspect]
     Active Substance: PIPERACILLIN SODIUM\TAZOBACTAM SODIUM
     Indication: NEUTROPENIA
  2. VANCOMYCIN (MANUFACTURER UNKNOWN) [Suspect]
     Active Substance: VANCOMYCIN
     Indication: PNEUMONIA
     Route: 065
  3. VANCOMYCIN (MANUFACTURER UNKNOWN) [Suspect]
     Active Substance: VANCOMYCIN
     Indication: NEUTROPENIA
  4. PIPERACILLIN/TAZOBACTAM (MANUFACTURER UNKNOWN) [Suspect]
     Active Substance: PIPERACILLIN SODIUM\TAZOBACTAM SODIUM
     Indication: NEUTROPENIA
     Route: 065
  5. CICLOSPORIN [Suspect]
     Active Substance: CYCLOSPORINE
     Indication: HISTIOCYTOSIS HAEMATOPHAGIC
     Route: 065

REACTIONS (2)
  - Potentiating drug interaction [Recovered/Resolved]
  - Acute kidney injury [Recovered/Resolved]
